FAERS Safety Report 8421091-7 (Version None)
Quarter: 2012Q2

REPORT INFORMATION
  Report Type: 
  Country: None (occurrence: None)
  Receive Date: 20120604
  Receipt Date: 20120604
  Transmission Date: 20120825
  Serious: Yes (Disabling)
  Sender: FDA-Public Use
  Company Number: None

PATIENT
  Age: 70 Year
  Sex: Female
  Weight: 79.8331 kg

DRUGS (2)
  1. PRAVACHOL [Suspect]
     Indication: BLOOD CHOLESTEROL INCREASED
     Dosage: 1PILLPER 1 DY PO
     Route: 048
     Dates: start: 19920101, end: 20120401
  2. CRESTOR [Suspect]
     Dosage: 1 PILL PER 1 DY PO
     Route: 048

REACTIONS (7)
  - GAIT DISTURBANCE [None]
  - MUSCULAR WEAKNESS [None]
  - MUSCULOSKELETAL STIFFNESS [None]
  - BACK PAIN [None]
  - ARTHRALGIA [None]
  - MYALGIA [None]
  - SENSATION OF HEAVINESS [None]
